FAERS Safety Report 9899372 (Version 1)
Quarter: 2014Q1

REPORT INFORMATION
  Report Type: Spontaneous
  Country: None (occurrence: US)
  Receive Date: 20140214
  Receipt Date: 20140214
  Transmission Date: 20141002
  Serious: No
  Sender: FDA-Public Use
  Company Number: US-TEVA-430566USA

PATIENT
  Sex: Female

DRUGS (1)
  1. METHOTREXATE [Suspect]
     Dosage: 3.5714 MG/ML DAILY;

REACTIONS (2)
  - Adverse event [Unknown]
  - Drug administration error [Unknown]
